FAERS Safety Report 15173040 (Version 5)
Quarter: 2019Q1

REPORT INFORMATION
  Report Type: Spontaneous
  Country: JP (occurrence: JP)
  Receive Date: 20180720
  Receipt Date: 20190204
  Transmission Date: 20190417
  Serious: Yes (Life-Threatening, Hospitalization, Other)
  Sender: FDA-Public Use
  Company Number: JP-BRISTOL-MYERS SQUIBB COMPANY-BMS-2018-067632

PATIENT
  Age: 81 Year
  Sex: Female

DRUGS (1)
  1. OPDIVO [Suspect]
     Active Substance: NIVOLUMAB
     Indication: NON-SMALL CELL LUNG CANCER
     Dosage: 3 MG/KG, Q2WK
     Route: 041
     Dates: start: 201605, end: 20180703

REACTIONS (14)
  - Myocarditis [Recovering/Resolving]
  - Pericardial effusion [Unknown]
  - Malignant neoplasm progression [Unknown]
  - Bradycardia [Unknown]
  - Sinus node dysfunction [Unknown]
  - Bundle branch block left [Unknown]
  - Pericarditis [Recovering/Resolving]
  - Sinus tachycardia [Unknown]
  - Bundle branch block right [Unknown]
  - Dyspnoea exertional [Unknown]
  - Dizziness [Unknown]
  - Atrial fibrillation [Unknown]
  - Cerebral ischaemia [Unknown]
  - Fall [Unknown]

NARRATIVE: CASE EVENT DATE: 201610
